FAERS Safety Report 5115353-9 (Version None)
Quarter: 2006Q3

REPORT INFORMATION
  Report Type: 
  Country: None (occurrence: None)
  Receive Date: 20060922
  Receipt Date: 20060911
  Transmission Date: 20061208
  Serious: Yes (Other)
  Sender: FDA-Public Use
  Company Number: 2006107062

PATIENT
  Age: 45 Year
  Sex: Female

DRUGS (3)
  1. PREGABALIN (PREGABALIN) [Suspect]
     Indication: EPILEPSY
     Dosage: 300 MG (150 MG, 2 IN 1 D), ORAL
     Route: 048
     Dates: start: 20050701
  2. LAMOTRIGINE [Concomitant]
  3. KEPPRA [Concomitant]

REACTIONS (1)
  - SPEECH DISORDER [None]
